FAERS Safety Report 4616613-8 (Version None)
Quarter: 2005Q1

REPORT INFORMATION
  Report Type: 
  Country: None (occurrence: None)
  Receive Date: 20050318
  Receipt Date: 20050307
  Transmission Date: 20050727
  Serious: Yes (Other)
  Sender: FDA-Public Use
  Company Number: 2004230862US

PATIENT
  Age: 24 Year
  Sex: Female
  Weight: 48.9885 kg

DRUGS (4)
  1. DEPO-PROVERA [Suspect]
     Indication: CONTRACEPTION
     Dosage: 150 MG (150 MG, EVERY THREE
     Dates: start: 20040823, end: 20040823
  2. VICODIN [Concomitant]
  3. CYCLOBENZAPRINE HYDROCHLORIDE [Concomitant]
  4. IBUPROFEN [Concomitant]

REACTIONS (6)
  - ABORTION SPONTANEOUS [None]
  - DRUG EXPOSURE DURING PREGNANCY [None]
  - FALSE NEGATIVE PREGNANCY TEST [None]
  - HUNGER [None]
  - PREGNANCY [None]
  - WEIGHT INCREASED [None]
